FAERS Safety Report 24276919 (Version 2)
Quarter: 2025Q1

REPORT INFORMATION
  Report Type: Spontaneous
  Country: US (occurrence: US)
  Receive Date: 20240903
  Receipt Date: 20250130
  Transmission Date: 20250409
  Serious: No
  Sender: LEO PHARM
  Company Number: US-LEO Pharma-373156

PATIENT
  Age: 70 Year
  Sex: Male

DRUGS (1)
  1. ADBRY [Suspect]
     Active Substance: TRALOKINUMAB-LDRM
     Indication: Dermatitis atopic
     Dosage: TREATMENT REPORTED AS ONGOING
     Dates: start: 202408

REACTIONS (5)
  - Dry eye [Unknown]
  - Conjunctivitis [Unknown]
  - Lacrimation increased [Unknown]
  - Blepharitis [Unknown]
  - Skin exfoliation [Unknown]
